FAERS Safety Report 6578736-6 (Version None)
Quarter: 2010Q1

REPORT INFORMATION
  Report Type: 
  Country: None (occurrence: None)
  Receive Date: 20100211
  Receipt Date: 20100203
  Transmission Date: 20100710
  Serious: Yes (Hospitalization)
  Sender: FDA-Public Use
  Company Number: NL-ABBOTT-10P-114-0617772-00

PATIENT
  Sex: Male

DRUGS (6)
  1. SYNAGIS [Suspect]
     Indication: ANTIVIRAL PROPHYLAXIS
     Dates: start: 20090916, end: 20090916
  2. SYNAGIS [Suspect]
     Dates: start: 20091014, end: 20091014
  3. SYNAGIS [Suspect]
     Dates: start: 20091111, end: 20091111
  4. SYNAGIS [Suspect]
     Dates: start: 20091207, end: 20091207
  5. SYNAGIS [Suspect]
     Dates: start: 20100104, end: 20100104
  6. QVAC [Concomitant]
     Indication: ASTHMA

REACTIONS (1)
  - RESPIRATORY SYNCYTIAL VIRUS INFECTION [None]
